FAERS Safety Report 8774364 (Version 1)
Quarter: 2012Q4

REPORT INFORMATION
  Report Type: 
  Country: US (occurrence: US)
  Receive Date: 20120907
  Receipt Date: 20120907
  Transmission Date: 20130627
  Serious: Yes (Other)
  Sender: FDA-Public Use
  Company Number: US-MUTUAL PHARMACEUTICAL COMPANY, INC.-BCTM20120055

PATIENT
  Age: 45 Year
  Sex: Male

DRUGS (1)
  1. BACTRIM [Suspect]
     Indication: INFECTION
     Route: 048

REACTIONS (1)
  - Electrocardiogram QT prolonged [Unknown]
